FAERS Safety Report 23527396 (Version 1)
Quarter: 2024Q1

REPORT INFORMATION
  Report Type: Spontaneous
  Country: US (occurrence: US)
  Receive Date: 20240215
  Receipt Date: 20240215
  Transmission Date: 20240410
  Serious: No
  Sender: FDA-Public Use
  Company Number: US-PFIZER INC-PV202400021317

PATIENT
  Age: 42 Year
  Sex: Female
  Weight: 81.6 kg

DRUGS (4)
  1. AZITHROMYCIN [Suspect]
     Active Substance: AZITHROMYCIN
     Indication: Oropharyngeal pain
     Dosage: UNK
     Dates: start: 20240129
  2. METHYLPREDNISOLONE [Suspect]
     Active Substance: METHYLPREDNISOLONE
     Indication: Cough
     Dosage: 4 MG
     Route: 048
     Dates: start: 20240129
  3. METHYLPREDNISOLONE [Suspect]
     Active Substance: METHYLPREDNISOLONE
     Indication: Oropharyngeal pain
  4. PROMETHAZINE [Suspect]
     Active Substance: PROMETHAZINE HYDROCHLORIDE
     Indication: Oropharyngeal pain
     Dosage: UNK
     Dates: start: 20240129

REACTIONS (4)
  - Pharyngeal hypoaesthesia [Not Recovered/Not Resolved]
  - Dizziness [Not Recovered/Not Resolved]
  - Reaction to excipient [Unknown]
  - Off label use [Unknown]

NARRATIVE: CASE EVENT DATE: 20240101
